FAERS Safety Report 4862642-9 (Version None)
Quarter: 2005Q4

REPORT INFORMATION
  Report Type: 
  Country: None (occurrence: None)
  Receive Date: 20051219
  Receipt Date: 20051208
  Transmission Date: 20060501
  Serious: Yes (Other)
  Sender: FDA-Public Use
  Company Number: 163-20785-05120208

PATIENT
  Age: 71 Year
  Sex: Female

DRUGS (1)
  1. THALOMID [Suspect]
     Indication: MULTIPLE MYELOMA
     Dosage: 350 MG, DAILY, ORAL
     Route: 048
     Dates: start: 20050701, end: 20051001

REACTIONS (1)
  - MONOPLEGIA [None]
